FAERS Safety Report 21259663 (Version 1)
Quarter: 2022Q3

REPORT INFORMATION
  Report Type: Spontaneous
  Country: US (occurrence: None)
  Receive Date: 20220825
  Receipt Date: 20220825
  Transmission Date: 20221026
  Serious: Yes (unspecified)
  Sender: FDA-Public Use
  Company Number: None

PATIENT
  Age: 32 Year
  Sex: Female
  Weight: 52.8 kg

DRUGS (3)
  1. INFLIXIMAB-AXXQ [Suspect]
     Active Substance: INFLIXIMAB-AXXQ
     Indication: Crohn^s disease
     Dosage: OTHER FREQUENCY : ONE TIME INFUSION;?
     Route: 041
     Dates: start: 20220824, end: 20220824
  2. Diphenhydramine 25 mg IVP [Concomitant]
     Dates: start: 20220824, end: 20220824
  3. Hydrocortisone 100 mg IVP [Concomitant]
     Dates: start: 20220824, end: 20220824

REACTIONS (7)
  - Infusion related reaction [None]
  - Cough [None]
  - Throat irritation [None]
  - Dyspnoea [None]
  - Erythema [None]
  - Discomfort [None]
  - Back pain [None]

NARRATIVE: CASE EVENT DATE: 20220824
